FAERS Safety Report 7509548-4 (Version None)
Quarter: 2011Q2

REPORT INFORMATION
  Report Type: 
  Country: None (occurrence: None)
  Receive Date: 20110527
  Receipt Date: 20110526
  Transmission Date: 20111010
  Serious: Yes (Hospitalization, Other)
  Sender: FDA-Public Use
  Company Number: JP-ABBOTT-11P-087-0718025-00

PATIENT
  Sex: Male
  Weight: 66 kg

DRUGS (5)
  1. HUMIRA [Suspect]
     Indication: CROHN'S DISEASE
     Route: 058
     Dates: start: 20110302, end: 20110302
  2. HUMIRA [Suspect]
     Dates: start: 20110316, end: 20110316
  3. HUMIRA [Suspect]
     Dates: start: 20110330
  4. MESALAMINE [Concomitant]
     Indication: CROHN'S DISEASE
     Route: 048
     Dates: start: 20050101
  5. TPN [Concomitant]
     Indication: CROHN'S DISEASE
     Route: 048
     Dates: start: 20050101

REACTIONS (4)
  - PYREXIA [None]
  - INTESTINAL MUCOSAL HYPERTROPHY [None]
  - JUGULAR VEIN THROMBOSIS [None]
  - VENA CAVA THROMBOSIS [None]
